FAERS Safety Report 18557906 (Version 29)
Quarter: 2023Q4

REPORT INFORMATION
  Report Type: Spontaneous
  Country: GB (occurrence: GB)
  Receive Date: 20201130
  Receipt Date: 20231020
  Transmission Date: 20240110
  Serious: Yes (Other)
  Sender: FDA-Public Use
  Company Number: GB-ALLERGAN-2044536US

PATIENT
  Age: 57 Year
  Sex: Male
  Weight: 83 kg

DRUGS (29)
  1. FLUCLOXACILLIN [Suspect]
     Active Substance: FLUCLOXACILLIN
     Indication: Vascular device infection
     Dosage: 8 GRAM, ONCE A DAY (8 G, QD, ONCE A DAY (2 GRAM, QID (QDS) (2 G, 4X/DAY) )
     Route: 065
  2. FLUCLOXACILLIN [Suspect]
     Active Substance: FLUCLOXACILLIN
     Dosage: 2 GRAM, ONCE A DAY (2 G, QD (ONCE A DAY))
     Route: 065
  3. FLUCLOXACILLIN [Suspect]
     Active Substance: FLUCLOXACILLIN
     Dosage: DOSE DESC: 8 G, QD, ONCE A DAY (2 GRAM, QID (QDS) (2 G, 4X/DAY); ;
     Route: 050
  4. FLUCLOXACILLIN [Suspect]
     Active Substance: FLUCLOXACILLIN
     Dosage: DAILY DOSE: 2.0 G
     Route: 050
  5. GABAPENTIN [Suspect]
     Active Substance: GABAPENTIN
     Indication: Ill-defined disorder
     Dosage: UNK
     Route: 048
  6. BACLOFEN [Suspect]
     Active Substance: BACLOFEN
     Indication: Product used for unknown indication
     Dosage: UNK
     Route: 048
  7. BACLOFEN [Suspect]
     Active Substance: BACLOFEN
     Dosage: DOSE DESC: UNK; ;
     Route: 050
  8. BOTOX [Suspect]
     Active Substance: ONABOTULINUMTOXINA
     Indication: Muscle spasticity
     Dosage: DOSE DESC: UNK UNK, SINGLE; AS NECESSARY;
     Route: 050
     Dates: start: 20190307, end: 20190307
  9. BOTOX [Suspect]
     Active Substance: ONABOTULINUMTOXINA
     Dosage: DOSE DESC: UNK UNK, SINGLE; AS NECESSARY;
     Route: 050
     Dates: start: 20190507, end: 20190507
  10. BOTOX [Suspect]
     Active Substance: ONABOTULINUMTOXINA
     Dosage: UNK UNK, AS NECESSARY
     Route: 050
     Dates: start: 20230905, end: 20230905
  11. ALLOPURINOL [Concomitant]
     Active Substance: ALLOPURINOL
     Indication: Ill-defined disorder
     Dosage: UNK
     Route: 065
  12. ALLOPURINOL [Concomitant]
     Active Substance: ALLOPURINOL
     Dosage: DOSE DESC: UNK; ;; ;
  13. ALLOPURINOL [Concomitant]
     Active Substance: ALLOPURINOL
     Dosage: DOSE DESC: UNK; ;
  14. DULOXETINE HYDROCHLORIDE [Concomitant]
     Active Substance: DULOXETINE HYDROCHLORIDE
     Indication: Ill-defined disorder
     Dosage: UNK
     Route: 016
  15. ENOXAPARIN SODIUM [Concomitant]
     Active Substance: ENOXAPARIN SODIUM
     Indication: Ill-defined disorder
     Dosage: UNK
     Route: 065
  16. FLUCONAZOLE [Concomitant]
     Active Substance: FLUCONAZOLE
     Indication: Ill-defined disorder
     Dosage: UNK
     Route: 048
  17. FLUCONAZOLE [Concomitant]
     Active Substance: FLUCONAZOLE
     Dosage: DOSE DESC: UNK UNK, QD; ;; ;
     Route: 050
  18. FLUCONAZOLE [Concomitant]
     Active Substance: FLUCONAZOLE
     Dosage: DOSE DESC: UNK; ;; ;
     Route: 050
  19. GABAPENTIN [Concomitant]
     Active Substance: GABAPENTIN
     Indication: Ill-defined disorder
     Dosage: UNK
     Route: 048
  20. LAMICTAL [Concomitant]
     Active Substance: LAMOTRIGINE
     Indication: Ill-defined disorder
     Dosage: UNK
     Route: 065
  21. LAMICTAL [Concomitant]
     Active Substance: LAMOTRIGINE
     Dosage: DOSE DESC: UNK; ;; ;
  22. OMEPRAZOLE SODIUM [Concomitant]
     Active Substance: OMEPRAZOLE SODIUM
     Indication: Ill-defined disorder
     Dosage: UNK
     Route: 048
  23. PEGFILGRASTIM [Concomitant]
     Active Substance: PEGFILGRASTIM
     Indication: Ill-defined disorder
     Dosage: UNK
     Route: 065
  24. PEGFILGRASTIM [Concomitant]
     Active Substance: PEGFILGRASTIM
     Dosage: DOSE DESC: UNK; ;
  25. PEGFILGRASTIM [Concomitant]
     Active Substance: PEGFILGRASTIM
     Dosage: DOSE DESC: UNK; ;; ;
  26. PROPRANOLOL HYDROCHLORIDE [Concomitant]
     Active Substance: PROPRANOLOL HYDROCHLORIDE
     Indication: Ill-defined disorder
     Dosage: UNK
     Route: 065
  27. GABAPENTIN [Suspect]
     Active Substance: GABAPENTIN
     Indication: Ill-defined disorder
     Dosage: DOSE DESC: UNK; ;; ;
     Route: 050
  28. DULOXETINE [Concomitant]
     Active Substance: DULOXETINE
     Indication: Ill-defined disorder
     Dosage: DOSE DESC: UNK; ;; ;
     Route: 050
  29. DULOXETINE [Concomitant]
     Active Substance: DULOXETINE
     Dosage: DOSE DESC: UNK; ;; ;

REACTIONS (7)
  - Acute encephalitis with refractory, repetitive partial seizures [Unknown]
  - Partial seizures [Recovered/Resolved]
  - Epilepsy [Recovered/Resolved]
  - Injection site pain [Unknown]
  - Somnolence [Unknown]
  - Muscle spasms [Unknown]
  - Simple partial seizures [Recovered/Resolved]

NARRATIVE: CASE EVENT DATE: 20230912
